FAERS Safety Report 8789447 (Version 1)
Quarter: 2012Q4

REPORT INFORMATION
  Report Type: Spontaneous
  Country: US (occurrence: None)
  Receive Date: 20120905
  Receipt Date: 20120905
  Transmission Date: 20130627
  Serious: Yes (Other)
  Sender: FDA-Public Use
  Company Number: CR12-0028

PATIENT
  Age: 56 Year
  Sex: Female

DRUGS (1)
  1. EPINEPHRINE [Suspect]

REACTIONS (7)
  - Self-medication [None]
  - Confusional state [None]
  - Dysarthria [None]
  - Chest discomfort [None]
  - Vision blurred [None]
  - Paraesthesia [None]
  - Cerebrovascular accident [None]
